FAERS Safety Report 14280028 (Version 1)
Quarter: 2017Q4

REPORT INFORMATION
  Report Type: Spontaneous
  Country: US (occurrence: US)
  Receive Date: 20171212
  Receipt Date: 20171212
  Transmission Date: 20180321
  Serious: No
  Sender: FDA-Public Use
  Company Number: None

PATIENT
  Age: 41 Year
  Sex: Male
  Weight: 124.2 kg

DRUGS (1)
  1. INFLIXIMAB-DYYB [Suspect]
     Active Substance: INFLIXIMAB-DYYB
     Dosage: OTHER FREQUENCY:ON CALL; COMPOUNDED?
     Route: 042
     Dates: start: 20170922, end: 20170922

REACTIONS (8)
  - Abdominal pain [None]
  - Abdominal distension [None]
  - Back pain [None]
  - Cough [None]
  - Rash [None]
  - Feeling abnormal [None]
  - Flatulence [None]
  - Drug ineffective [None]

NARRATIVE: CASE EVENT DATE: 20171030
